FAERS Safety Report 7333967-2 (Version None)
Quarter: 2011Q1

REPORT INFORMATION
  Report Type: 
  Country: None (occurrence: None)
  Receive Date: 20110302
  Receipt Date: 20110302
  Transmission Date: 20110831
  Serious: No
  Sender: FDA-Public Use
  Company Number: None

PATIENT
  Age: 30 Year
  Weight: 79.8331 kg

DRUGS (2)
  1. HYDROCHLOROTHIAZIDE [Suspect]
     Dosage: 1 ONCE A DAY YES
  2. LUTERA SUBSTITUTED FOR ALESSE [Suspect]
     Dosage: 1 ONCE A DAY YES

REACTIONS (2)
  - PYREXIA [None]
  - VULVOVAGINAL PRURITUS [None]
